FAERS Safety Report 11937248 (Version 4)
Quarter: 2016Q2

REPORT INFORMATION
  Report Type: Spontaneous
  Country: JP (occurrence: JP)
  Receive Date: 20160121
  Receipt Date: 20160405
  Transmission Date: 20160815
  Serious: Yes (Other)
  Sender: FDA-Public Use
  Company Number: JP-ABBVIE-16P-087-1538714-00

PATIENT
  Age: 78 Year
  Sex: Male

DRUGS (1)
  1. VIEKIRAX [Suspect]
     Active Substance: OMBITASVIR\PARITAPREVIR\RITONAVIR
     Indication: HEPATITIS C
     Dosage: THERAPY COMPLETE
     Route: 048
     Dates: start: 20151219, end: 20160311

REACTIONS (18)
  - Palpitations [Unknown]
  - Headache [Not Recovered/Not Resolved]
  - Insomnia [Unknown]
  - Platelet count decreased [Unknown]
  - Cough [Not Recovered/Not Resolved]
  - Feeling cold [Recovered/Resolved]
  - Visual impairment [Unknown]
  - Chest discomfort [Recovered/Resolved]
  - Asthenia [Recovered/Resolved]
  - Loss of consciousness [Recovered/Resolved]
  - Gait disturbance [Unknown]
  - Malaise [Unknown]
  - Heart rate irregular [Recovered/Resolved]
  - Fall [Unknown]
  - Haemorrhage [Unknown]
  - Contusion [Unknown]
  - Anxiety [Unknown]
  - Fall [Unknown]

NARRATIVE: CASE EVENT DATE: 20151221
